FAERS Safety Report 5335282-5 (Version None)
Quarter: 2007Q2

REPORT INFORMATION
  Report Type: 
  Country: None (occurrence: None)
  Receive Date: 20070525
  Receipt Date: 20070515
  Transmission Date: 20071010
  Serious: Yes (Other)
  Sender: FDA-Public Use
  Company Number: FR-PFIZER INC-2007032968

PATIENT
  Sex: Female
  Weight: 54 kg

DRUGS (3)
  1. FARMORUBUCIN RD [Suspect]
     Indication: BREAST CANCER
     Dosage: DAILY DOSE:150MG
     Route: 042
  2. FLUOROURACIL [Suspect]
     Indication: BREAST CANCER
     Dosage: DAILY DOSE:790MG
     Route: 042
  3. CYCLOPHOSPHAMIDE [Suspect]
     Indication: BREAST CANCER
     Dosage: DAILY DOSE:790MG
     Route: 042

REACTIONS (2)
  - EXTRAVASATION [None]
  - PLEURAL EFFUSION [None]
